FAERS Safety Report 7500889-3 (Version None)
Quarter: 2011Q2

REPORT INFORMATION
  Report Type: 
  Country: None (occurrence: None)
  Receive Date: 20110524
  Receipt Date: 20110510
  Transmission Date: 20111010
  Serious: Yes (Other)
  Sender: FDA-Public Use
  Company Number: B0718608A

PATIENT
  Sex: Male

DRUGS (7)
  1. ASVERIN [Concomitant]
     Indication: NASOPHARYNGITIS
     Dosage: .6MG PER DAY
     Route: 048
     Dates: start: 20110215, end: 20110219
  2. BISOLVON [Concomitant]
     Indication: NASOPHARYNGITIS
     Dosage: .6MG PER DAY
     Route: 048
     Dates: start: 20110215, end: 20110219
  3. LAMICTAL [Suspect]
     Indication: EPILEPSY
     Dosage: 8MG PER DAY
     Route: 048
     Dates: start: 20110217, end: 20110221
  4. MEPTIN [Concomitant]
     Indication: NASOPHARYNGITIS
     Dosage: .6MG PER DAY
     Route: 048
     Dates: start: 20110215, end: 20110219
  5. SELENICA R [Concomitant]
     Indication: EPILEPSY
     Dosage: 600MG PER DAY
     Route: 048
     Dates: start: 20110203
  6. PYRINAZIN [Concomitant]
     Indication: NASOPHARYNGITIS
     Route: 048
     Dates: start: 20110215, end: 20110219
  7. PERIACTIN [Concomitant]
     Indication: NASOPHARYNGITIS
     Dosage: .6MG PER DAY
     Route: 048
     Dates: start: 20110215, end: 20110219

REACTIONS (6)
  - URTICARIA [None]
  - MUCOSAL EXFOLIATION [None]
  - STEVENS-JOHNSON SYNDROME [None]
  - MUCOCUTANEOUS RASH [None]
  - DRUG ERUPTION [None]
  - PRURITUS GENERALISED [None]
